FAERS Safety Report 8771529 (Version 1)
Quarter: 2012Q4

REPORT INFORMATION
  Report Type: 
  Country: BR (occurrence: PT)
  Receive Date: 20120904
  Receipt Date: 20120904
  Transmission Date: 20130627
  Serious: Yes (Other)
  Sender: FDA-Public Use
  Company Number: BR-PFIZER INC-2012215161

PATIENT
  Age: 49 Year
  Sex: Male

DRUGS (1)
  1. CELECOXIB [Suspect]
     Indication: MUSCULOSKELETAL PAIN
     Dosage: 200 mg daily

REACTIONS (1)
  - Cholestasis [Recovered/Resolved]
